FAERS Safety Report 26181288 (Version 1)
Quarter: 2025Q4

REPORT INFORMATION
  Report Type: Spontaneous
  Country: US (occurrence: US)
  Receive Date: 20251221
  Receipt Date: 20251221
  Transmission Date: 20260119
  Serious: No
  Sender: MERCK SHARP & DOHME LLC
  Company Number: US-009507513-2362052

PATIENT
  Age: 11 Year

DRUGS (3)
  1. TEMOZOLOMIDE [Suspect]
     Active Substance: TEMOZOLOMIDE
     Indication: Neuroblastoma recurrent
     Dosage: 17 CYCLES
  2. IRINOTECAN [Concomitant]
     Active Substance: IRINOTECAN
     Indication: Neuroblastoma recurrent
     Dosage: 17 CYCLES
  3. DINUTUXIMAB [Concomitant]
     Active Substance: DINUTUXIMAB
     Indication: Neuroblastoma recurrent
     Dosage: 17 CYCLES

REACTIONS (1)
  - Product use in unapproved indication [Unknown]
